FAERS Safety Report 5853242-2 (Version None)
Quarter: 2008Q3

REPORT INFORMATION
  Report Type: 
  Country: None (occurrence: None)
  Receive Date: 20080820
  Receipt Date: 20080806
  Transmission Date: 20090109
  Serious: Yes (Death, Hospitalization)
  Sender: FDA-Public Use
  Company Number: 2008EN000110

PATIENT
  Age: 41 Year
  Sex: Male

DRUGS (14)
  1. ONCASPAR [Suspect]
     Indication: ACUTE LYMPHOCYTIC LEUKAEMIA
  2. CHEMOTHERAPY [Suspect]
  3. VALSARTAN [Suspect]
  4. GLEEVEC [Concomitant]
  5. PREDNISONE TAB [Concomitant]
  6. INSULIN [Concomitant]
  7. ACYCLOVIR [Concomitant]
  8. COUMADIN [Concomitant]
  9. PRILOSEC [Concomitant]
  10. POSACONAZOLE [Concomitant]
  11. LORAZEPAM [Concomitant]
  12. OXYCODONE HCL [Concomitant]
  13. ANTIEPILEPTICS [Concomitant]
  14. ANTIHYPERTENSIVES [Concomitant]

REACTIONS (21)
  - BILIRUBIN CONJUGATED INCREASED [None]
  - CAECITIS [None]
  - CONFUSIONAL STATE [None]
  - GASTROINTESTINAL MOTILITY DISORDER [None]
  - HEPATIC FAILURE [None]
  - HYPOTENSION [None]
  - IMPAIRED GASTRIC EMPTYING [None]
  - MENTAL STATUS CHANGES [None]
  - METABOLIC ENCEPHALOPATHY [None]
  - MULTI-ORGAN FAILURE [None]
  - PANCREATITIS [None]
  - PERITONITIS BACTERIAL [None]
  - PLATELET COUNT DECREASED [None]
  - PLEURAL EFFUSION [None]
  - PURULENCE [None]
  - RENAL FAILURE ACUTE [None]
  - SMALL INTESTINAL OBSTRUCTION [None]
  - SOFT TISSUE NECROSIS [None]
  - TRANSAMINASES INCREASED [None]
  - VIRAL INFECTION [None]
  - WHITE BLOOD CELL COUNT DECREASED [None]
